FAERS Safety Report 23884150 (Version 1)
Quarter: 2024Q2

REPORT INFORMATION
  Report Type: Spontaneous
  Country: US (occurrence: None)
  Receive Date: 20240521
  Receipt Date: 20240521
  Transmission Date: 20240715
  Serious: Yes (Other)
  Sender: FDA-Public Use
  Company Number: None

PATIENT
  Age: 37 Year
  Sex: Female
  Weight: 93.6 kg

DRUGS (1)
  1. ZEPBOUND [Suspect]
     Active Substance: TIRZEPATIDE
     Dosage: FREQUENCY : WEEKLY;?
     Route: 058

REACTIONS (2)
  - Contusion [None]
  - Hyperaesthesia [None]

NARRATIVE: CASE EVENT DATE: 20240508
